FAERS Safety Report 8437113-3 (Version None)
Quarter: 2012Q2

REPORT INFORMATION
  Report Type: 
  Country: None (occurrence: None)
  Receive Date: 20120614
  Receipt Date: 20120502
  Transmission Date: 20120825
  Serious: No
  Sender: FDA-Public Use
  Company Number: US-AMGEN-USASP2012012531

PATIENT
  Age: 85 Year
  Sex: Female

DRUGS (6)
  1. CENTRUM                            /00554501/ [Concomitant]
     Dosage: UNK
  2. COZAAR [Concomitant]
     Dosage: UNK
  3. VITAMIN C                          /00008001/ [Concomitant]
     Dosage: UNK
  4. CARDIZEM [Concomitant]
     Dosage: UNK
  5. PROLIA [Suspect]
     Indication: OSTEOPOROSIS POSTMENOPAUSAL
     Dosage: UNK
     Dates: start: 20120213
  6. MEVACOR [Concomitant]
     Dosage: UNK

REACTIONS (2)
  - GINGIVITIS [None]
  - INJECTION SITE PAIN [None]
